FAERS Safety Report 15940922 (Version 1)
Quarter: 2019Q1

REPORT INFORMATION
  Report Type: Spontaneous
  Country: GB (occurrence: GB)
  Receive Date: 20190208
  Receipt Date: 20190208
  Transmission Date: 20190417
  Serious: Yes (Hospitalization)
  Sender: FDA-Public Use
  Company Number: GB-FRESENIUS KABI-FK201901330

PATIENT
  Age: 68 Year
  Sex: Male
  Weight: 103 kg

DRUGS (4)
  1. IRINOTECAN (MANUFACTURER UNKNOWN) [Suspect]
     Active Substance: IRINOTECAN
     Indication: SMALL INTESTINE CARCINOMA STAGE III
     Route: 042
     Dates: start: 20190102
  2. CETUXIMAB. [Suspect]
     Active Substance: CETUXIMAB
     Indication: SMALL INTESTINE CARCINOMA STAGE III
     Route: 042
     Dates: start: 20190102
  3. LEUCOVORIN CALCIUM (MANUFACTURER UNKNOWN) [Suspect]
     Active Substance: LEUCOVORIN CALCIUM
     Indication: SMALL INTESTINE CARCINOMA STAGE III
     Route: 042
     Dates: start: 20190102
  4. FLUOROURACIL. [Suspect]
     Active Substance: FLUOROURACIL
     Indication: SMALL INTESTINE CARCINOMA STAGE III
     Route: 042
     Dates: start: 20190102

REACTIONS (3)
  - Gastrointestinal stoma complication [Unknown]
  - Acute kidney injury [Not Recovered/Not Resolved]
  - Nausea [Not Recovered/Not Resolved]

NARRATIVE: CASE EVENT DATE: 20190111
